FAERS Safety Report 7653364-X (Version None)
Quarter: 2011Q3

REPORT INFORMATION
  Report Type: 
  Country: None (occurrence: None)
  Receive Date: 20110802
  Receipt Date: 20110802
  Transmission Date: 20111222
  Serious: Yes (Disabling)
  Sender: FDA-Public Use
  Company Number: None

PATIENT
  Age: 57 Year
  Sex: Male
  Weight: 106.5953 kg

DRUGS (1)
  1. OMEPRAZOLE [Suspect]
     Indication: GASTROOESOPHAGEAL REFLUX DISEASE
     Dosage: 20 MG TWICE DAILY BY MOUTH
     Route: 048
     Dates: start: 20100101, end: 20100401

REACTIONS (12)
  - MALAISE [None]
  - WEIGHT DECREASED [None]
  - EXOSTOSIS [None]
  - MOBILITY DECREASED [None]
  - HYPOPHAGIA [None]
  - TENDON RUPTURE [None]
  - PAIN IN EXTREMITY [None]
  - FOOD INTOLERANCE [None]
  - MUSCULOSKELETAL PAIN [None]
  - NAUSEA [None]
  - MUSCLE ATROPHY [None]
  - ROTATOR CUFF SYNDROME [None]
